FAERS Safety Report 26150590 (Version 1)
Quarter: 2025Q4

REPORT INFORMATION
  Report Type: Spontaneous
  Country: US (occurrence: None)
  Receive Date: 20251211
  Receipt Date: 20251211
  Transmission Date: 20260118
  Serious: Yes (Disabling)
  Sender: FDA-CTU
  Company Number: None

PATIENT
  Age: 49 Year
  Sex: Female
  Weight: 94.5 kg

DRUGS (1)
  1. PREGABALIN [Suspect]
     Active Substance: PREGABALIN
     Indication: Radiculopathy
     Dates: start: 202410, end: 20251031

REACTIONS (12)
  - Neuralgia [None]
  - Tremor [None]
  - Autonomic nervous system imbalance [None]
  - Cognitive disorder [None]
  - Joint noise [None]
  - Nausea [None]
  - Vomiting [None]
  - Ankle fracture [None]
  - Fall [None]
  - Dizziness [None]
  - Gait disturbance [None]
  - Therapy cessation [None]

NARRATIVE: CASE EVENT DATE: 20241030
